FAERS Safety Report 8552260-3 (Version None)
Quarter: 2012Q3

REPORT INFORMATION
  Report Type: 
  Country: None (occurrence: None)
  Receive Date: 20120731
  Receipt Date: 20120720
  Transmission Date: 20120928
  Serious: Yes (Other)
  Sender: FDA-Public Use
  Company Number: JP-BRISTOL-MYERS SQUIBB COMPANY-16714008

PATIENT
  Age: 62 Year
  Sex: Male
  Weight: 59 kg

DRUGS (8)
  1. PREDNISOLONE [Concomitant]
     Indication: RHEUMATOID ARTHRITIS
     Route: 048
     Dates: start: 20101026
  2. ETODOLAC [Concomitant]
     Indication: RHEUMATOID ARTHRITIS
  3. ORENCIA [Suspect]
     Indication: RHEUMATOID ARTHRITIS
     Dosage: 3 INFUSIONS, DATES:01MAR2011,15MAR11,29MAR11
     Route: 041
     Dates: start: 20110301
  4. CRESTOR [Concomitant]
  5. ACTONEL [Concomitant]
     Indication: PROPHYLAXIS
  6. SULFAMETHOXAZOLE AND TRIMETHOPRIM [Concomitant]
     Indication: PROPHYLAXIS
  7. OPALMON [Concomitant]
  8. FAMOTIDINE [Concomitant]
     Indication: PROPHYLAXIS

REACTIONS (1)
  - VASCULITIS [None]
